FAERS Safety Report 23601855 (Version 1)
Quarter: 2024Q1

REPORT INFORMATION
  Report Type: Spontaneous
  Country: US (occurrence: None)
  Receive Date: 20240306
  Receipt Date: 20240306
  Transmission Date: 20240410
  Serious: Yes (Life-Threatening, Hospitalization, Disabling)
  Sender: FDA-Public Use
  Company Number: None

PATIENT
  Age: 25 Year
  Sex: Male
  Weight: 78.3 kg

DRUGS (5)
  1. XCOPRI [Suspect]
     Active Substance: CENOBAMATE
     Indication: Epilepsy
     Dosage: FREQUENCY : DAILY;?
     Dates: start: 20220506, end: 20220925
  2. DEPAKOTE [Concomitant]
     Active Substance: DIVALPROEX SODIUM
  3. NOFI [Concomitant]
  4. RISPERDAL [Concomitant]
     Active Substance: RISPERIDONE
  5. BANZEL [Concomitant]
     Active Substance: RUFINAMIDE

REACTIONS (4)
  - Acute respiratory failure [None]
  - Therapy cessation [None]
  - Salivary hypersecretion [None]
  - Aspiration [None]

NARRATIVE: CASE EVENT DATE: 20220811
